FAERS Safety Report 14377682 (Version 1)
Quarter: 2018Q1

REPORT INFORMATION
  Report Type: Spontaneous
  Country: US (occurrence: US)
  Receive Date: 20180111
  Receipt Date: 20180111
  Transmission Date: 20180509
  Serious: Yes (Hospitalization)
  Sender: FDA-Public Use
  Company Number: US-TEVA-2018-US-844118

PATIENT
  Age: 42 Year
  Sex: Female

DRUGS (1)
  1. MORPHINE [Suspect]
     Active Substance: MORPHINE
     Dosage: THROUGH INTRATHECAL DRUG DELIVERY DEVICE
     Route: 037

REACTIONS (8)
  - Radiculopathy [Recovered/Resolved]
  - Constipation [Recovered/Resolved]
  - Asthenia [Recovered/Resolved]
  - Urinary retention [Recovered/Resolved]
  - Granuloma [Recovered/Resolved]
  - Condition aggravated [Recovered/Resolved]
  - Anaesthesia [Recovered/Resolved]
  - Spinal cord oedema [Recovered/Resolved]
